FAERS Safety Report 7180073-6 (Version None)
Quarter: 2010Q4

REPORT INFORMATION
  Report Type: 
  Country: None (occurrence: None)
  Receive Date: 20101123
  Receipt Date: 20100831
  Transmission Date: 20110411
  Serious: No
  Sender: FDA-Public Use
  Company Number: 016622

PATIENT
  Sex: Female
  Weight: 52.2 kg

DRUGS (12)
  1. CIMZIA [Suspect]
     Indication: CROHN'S DISEASE
     Dosage: (SUBCUTANEOUS) ; (400 MG 1X/MONTH SUBCUTANEOUS)
     Route: 058
     Dates: start: 20100520
  2. CIMZIA [Suspect]
     Indication: CROHN'S DISEASE
     Dosage: (SUBCUTANEOUS) ; (400 MG 1X/MONTH SUBCUTANEOUS)
     Route: 058
     Dates: start: 20100803
  3. IMURAN [Concomitant]
  4. PROZAC /00724401/ [Concomitant]
  5. PRILOSEC [Concomitant]
  6. NIFEREX /01214501/ [Concomitant]
  7. DARVOCET-N 100 [Concomitant]
  8. FLEXERIL [Concomitant]
  9. FIORICET [Concomitant]
  10. POTASSIUM [Concomitant]
  11. ELAVIL [Concomitant]
  12. LOMOTIL /00034001/ [Concomitant]

REACTIONS (3)
  - ACNE PUSTULAR [None]
  - BACK PAIN [None]
  - DIARRHOEA [None]
